FAERS Safety Report 8571697-X (Version None)
Quarter: 2012Q3

REPORT INFORMATION
  Report Type: 
  Country: None (occurrence: None)
  Receive Date: 20120806
  Receipt Date: 20120727
  Transmission Date: 20120928
  Serious: Yes (Hospitalization)
  Sender: FDA-Public Use
  Company Number: US-JNJFOC-20120100606

PATIENT
  Sex: Female
  Weight: 61.24 kg

DRUGS (4)
  1. REMICADE [Suspect]
     Indication: ARTHRITIS
     Route: 042
  2. REMICADE [Suspect]
     Indication: CROHN'S DISEASE
     Route: 042
  3. CYMBALTA [Concomitant]
     Indication: FIBROMYALGIA
     Route: 065
  4. LYRICA [Concomitant]
     Indication: FIBROMYALGIA
     Route: 065

REACTIONS (7)
  - BACK PAIN [None]
  - CYSTITIS [None]
  - PARAESTHESIA [None]
  - WITHDRAWAL SYNDROME [None]
  - WEIGHT INCREASED [None]
  - ARACHNOIDITIS [None]
  - SEPSIS [None]
